FAERS Safety Report 26063667 (Version 1)
Quarter: 2025Q4

REPORT INFORMATION
  Report Type: Report from Study
  Country: US (occurrence: US)
  Receive Date: 20251119
  Receipt Date: 20251119
  Transmission Date: 20260118
  Serious: Yes (Hospitalization, Other)
  Sender: ABBVIE
  Company Number: US-ABBVIE-6539258

PATIENT
  Age: 64 Year
  Sex: Female
  Weight: 97 kg

DRUGS (3)
  1. RINVOQ [Suspect]
     Active Substance: UPADACITINIB
     Indication: Product used for unknown indication
     Dosage: FORM STRENGTH: 1MILLIGRAM
     Route: 048
     Dates: start: 20250417, end: 202506
  2. RINVOQ [Suspect]
     Active Substance: UPADACITINIB
  3. REPATHA [Concomitant]
     Active Substance: EVOLOCUMAB
     Indication: Blood cholesterol

REACTIONS (6)
  - Sepsis [Recovered/Resolved]
  - Illness [Recovered/Resolved]
  - Sepsis [Recovered/Resolved]
  - Pyrexia [Unknown]
  - Illness [Recovered/Resolved]
  - Hypokalaemia [Recovered/Resolved]

NARRATIVE: CASE EVENT DATE: 20250501
